FAERS Safety Report 19880533 (Version 2)
Quarter: 2021Q4

REPORT INFORMATION
  Report Type: Report from Study
  Country: MX (occurrence: MX)
  Receive Date: 20210924
  Receipt Date: 20211202
  Transmission Date: 20220303
  Serious: Yes (Death, Hospitalization)
  Sender: FDA-Public Use
  Company Number: MX-NOVARTISPH-NVSC2021MX188811

PATIENT
  Sex: Female
  Weight: 60 kg

DRUGS (4)
  1. ENTRESTO [Suspect]
     Active Substance: SACUBITRIL\VALSARTAN
     Indication: Cardiomegaly
     Dosage: 1 DF, QD (50 MG) (STARTED AROUND 3 MONTHS AGO AND STOPPED ONE MONTH AGO)
     Route: 048
     Dates: start: 2021
  2. ENTRESTO [Suspect]
     Active Substance: SACUBITRIL\VALSARTAN
     Dosage: 0.5 MG, QD (50 MG)
     Route: 065
  3. ENTRESTO [Suspect]
     Active Substance: SACUBITRIL\VALSARTAN
     Dosage: 0.5 DF (1 DAY YES 1 DAY NO) (1 MONTH AGO)
     Route: 048
  4. ENTRESTO [Suspect]
     Active Substance: SACUBITRIL\VALSARTAN
     Dosage: 50 MG (1/3 TABLET), QD
     Route: 048

REACTIONS (10)
  - Cardiac failure [Fatal]
  - Adverse drug reaction [Unknown]
  - Illness [Unknown]
  - Cardiomegaly [Unknown]
  - Bronchitis [Recovered/Resolved]
  - Malaise [Not Recovered/Not Resolved]
  - Underdose [Unknown]
  - Product use in unapproved indication [Unknown]
  - Wrong technique in product usage process [Unknown]
  - Inappropriate schedule of product administration [Unknown]

NARRATIVE: CASE EVENT DATE: 20210101
